FAERS Safety Report 4774173-5 (Version None)
Quarter: 2005Q3

REPORT INFORMATION
  Report Type: 
  Country: None (occurrence: None)
  Receive Date: 20050914
  Receipt Date: 20050401
  Transmission Date: 20060218
  Serious: Yes (Other)
  Sender: FDA-Public Use
  Company Number: 163-20785-05040215

PATIENT
  Sex: Male

DRUGS (6)
  1. THALOMID OR PLACEBO (THALIDOMIDE) (CAPSULES) [Suspect]
     Dosage: 200 MG OR PLACEBO, DAILY, ORAL
     Route: 048
     Dates: start: 20011231
  2. THALOMID OR PLACEBO (THALIDOMIDE) (CAPSULES) [Suspect]
     Dosage: 200 MG OR PLACEBO, DAILY, ORAL
     Route: 048
     Dates: start: 20021230
  3. THALOMID OR PLACEBO (THALIDOMIDE) (CAPSULES) [Suspect]
     Dosage: 200 MG OR PLACEBO, DAILY, ORAL
     Route: 048
     Dates: start: 20030825
  4. LEUPROLIDE (L) OR GOSERELIN (G)  (UNKNOWN) [Suspect]
     Indication: PROSTATIC INTRAEPITHELIAL NEOPLASIA
     Dosage: SEE IMAGE
     Route: 058
     Dates: start: 20011231
  5. LEUPROLIDE (L) OR GOSERELIN (G)  (UNKNOWN) [Suspect]
     Indication: PROSTATIC INTRAEPITHELIAL NEOPLASIA
     Dosage: SEE IMAGE
     Route: 058
     Dates: start: 20021230
  6. LEUPROLIDE (L) OR GOSERELIN (G)  (UNKNOWN) [Suspect]
     Indication: PROSTATIC INTRAEPITHELIAL NEOPLASIA
     Dosage: SEE IMAGE
     Route: 058
     Dates: start: 20030825

REACTIONS (1)
  - DYSPNOEA [None]
